FAERS Safety Report 4555812-0 (Version None)
Quarter: 2005Q1

REPORT INFORMATION
  Report Type: 
  Country: None (occurrence: None)
  Receive Date: 20050119
  Receipt Date: 20021105
  Transmission Date: 20050727
  Serious: Yes (Hospitalization)
  Sender: FDA-Public Use
  Company Number: US-BRISTOL-MYERS SQUIBB COMPANY-12108759

PATIENT
  Age: 41 Year
  Sex: Male

DRUGS (19)
  1. EFAVIRENZ [Suspect]
     Indication: HIV INFECTION
     Route: 048
     Dates: start: 20010107
  2. RETROVIR [Suspect]
     Indication: HIV INFECTION
     Dosage: 100MG 3X/DAY 04-AUG-1996,200MG 2X/DAY 27-JUL-1999,200MG 3X/DAY 07-AUG-1999-11-JUN-2001
     Route: 048
     Dates: start: 19920817, end: 20010611
  3. COMBIVIR [Suspect]
     Indication: HIV INFECTION
     Route: 048
     Dates: start: 20010612
  4. HIVID [Suspect]
     Indication: HIV INFECTION
     Dosage: 07-FEB-95-08-DEC-95;04-AUG-96-04-JUL-97;.375MG3X/D 05-JUL-97-07-NOV-99;.75MG3X/D 08-NOV-99-11-JUN01
     Dates: start: 19940209, end: 20010611
  5. ZERIT [Concomitant]
     Dates: start: 19951211, end: 19960803
  6. TOLEDOMIN [Concomitant]
     Dates: start: 20020201
  7. DOGMATYL [Concomitant]
     Dates: start: 20020201
  8. VIRACEPT [Concomitant]
     Dates: start: 19990727, end: 20010106
  9. NORVIR [Concomitant]
     Dates: start: 19971220, end: 19990726
  10. DEPAS [Concomitant]
  11. LOPEMIN [Concomitant]
     Dates: end: 20010428
  12. LENDORMIN [Concomitant]
  13. DAONIL [Concomitant]
  14. GLYBURIDE [Concomitant]
     Dates: end: 20020131
  15. GLUCOBAY [Concomitant]
     Dates: end: 20020131
  16. LIPANTIL [Concomitant]
  17. KOGENATE [Concomitant]
     Dates: end: 20020331
  18. OCTOCOG ALPHA [Concomitant]
  19. ALLOPURINOL TAB [Concomitant]
     Dates: end: 20010428

REACTIONS (6)
  - ALANINE AMINOTRANSFERASE INCREASED [None]
  - ASPARTATE AMINOTRANSFERASE INCREASED [None]
  - CONSTIPATION [None]
  - DIABETES MELLITUS [None]
  - GAMMA-GLUTAMYLTRANSFERASE INCREASED [None]
  - HEPATIC FUNCTION ABNORMAL [None]
